FAERS Safety Report 10257450 (Version 3)
Quarter: 2014Q3

REPORT INFORMATION
  Report Type: Spontaneous
  Country: IT (occurrence: IT)
  Receive Date: 20140625
  Receipt Date: 20140703
  Transmission Date: 20150326
  Serious: Yes (Other)
  Sender: FDA-Public Use
  Company Number: IT-JNJFOC-20140515861

PATIENT
  Age: 25 Year
  Sex: Male
  Weight: 75 kg

DRUGS (6)
  1. INVEGA [Suspect]
     Active Substance: PALIPERIDONE
     Indication: PSYCHOTIC DISORDER
     Route: 048
  2. INVEGA [Suspect]
     Active Substance: PALIPERIDONE
     Indication: EATING DISORDER
     Route: 048
     Dates: start: 20090302, end: 20140613
  3. INVEGA [Suspect]
     Active Substance: PALIPERIDONE
     Indication: PSYCHOTIC DISORDER
     Route: 048
     Dates: start: 20090302, end: 20140613
  4. ENTACT [Concomitant]
     Active Substance: ESCITALOPRAM OXALATE
     Indication: DEPRESSION
     Route: 048
     Dates: start: 20130101, end: 20130613
  5. INVEGA [Suspect]
     Active Substance: PALIPERIDONE
     Indication: EATING DISORDER
     Route: 048
  6. EUTIROX [Concomitant]
     Active Substance: LEVOTHYROXINE SODIUM
     Indication: HYPOTHYROIDISM
     Route: 048

REACTIONS (2)
  - Pineal gland cyst [Unknown]
  - Refusal of treatment by patient [Unknown]

NARRATIVE: CASE EVENT DATE: 20140326
